FAERS Safety Report 19840801 (Version 1)
Quarter: 2021Q3

REPORT INFORMATION
  Report Type: Spontaneous
  Country: DE (occurrence: DE)
  Receive Date: 20210916
  Receipt Date: 20210916
  Transmission Date: 20211014
  Serious: Yes (Hospitalization)
  Sender: FDA-Public Use
  Company Number: DE-TEVA-2021-DE-1951646

PATIENT
  Age: 69 Year
  Sex: Male
  Weight: 61 kg

DRUGS (9)
  1. FLUOROURACIL. [Suspect]
     Active Substance: FLUOROURACIL
     Dosage: AMPOULES
     Route: 042
  2. IRINOTECAN [Suspect]
     Active Substance: IRINOTECAN
     Route: 042
  3. INSULIN ASPART [Concomitant]
     Active Substance: INSULIN ASPART
     Dosage: 300 IU / 3ML, 6?3?3?0, PRE?FILLED SYRINGES
     Route: 058
  4. INSULIN GLARGIN [Concomitant]
     Active Substance: INSULIN GLARGINE
     Dosage: 6 DOSAGE FORMS DAILY; 450 U / 1.5ML, 0?0?0?6, PRE?FILLED SYRINGES
     Route: 058
  5. TINZAPARIN [Suspect]
     Active Substance: TINZAPARIN
     Dosage: 1 DOSAGE FORMS DAILY; 10,000 IU / 0.5ML, 0?0?1?0, PRE?FILLED SYRINGES
     Route: 058
  6. LOPERAMID [Concomitant]
     Active Substance: LOPERAMIDE
     Dosage: 2 MG, IF NECESSARY,
     Route: 048
  7. PIVMECILLINAM [Concomitant]
     Active Substance: AMDINOCILLIN PIVOXIL
     Dosage: 1200 MILLIGRAM DAILY; 1?1?1?0
     Route: 048
  8. KREON 25000 [Concomitant]
     Active Substance: PANCRELIPASE
     Dosage: 75000 IU (INTERNATIONAL UNIT) DAILY; 1?1?1?0
     Route: 048
  9. PANTOPRAZOL [Concomitant]
     Active Substance: PANTOPRAZOLE SODIUM
     Dosage: 40 MILLIGRAM DAILY; 1?0?0?0
     Route: 048

REACTIONS (5)
  - Pyrexia [Unknown]
  - Fluid intake reduced [Unknown]
  - Decreased appetite [Unknown]
  - Diarrhoea [Unknown]
  - Fine motor skill dysfunction [Unknown]
